APPROVED DRUG PRODUCT: CARMUSTINE
Active Ingredient: CARMUSTINE
Strength: 100MG/VIAL
Dosage Form/Route: INJECTABLE;INJECTION
Application: A211011 | Product #001
Applicant: NOVAST LABORATORIES LTD
Approved: Jun 21, 2022 | RLD: No | RS: No | Type: DISCN